FAERS Safety Report 9565664 (Version 1)
Quarter: 2013Q3

REPORT INFORMATION
  Report Type: Spontaneous
  Country: IT (occurrence: IT)
  Receive Date: 20130930
  Receipt Date: 20130930
  Transmission Date: 20140515
  Serious: Yes (Hospitalization)
  Sender: FDA-Public Use
  Company Number: PHHY2013IT106775

PATIENT
  Age: 56 Year
  Sex: Male

DRUGS (14)
  1. ISONIAZID [Suspect]
     Indication: TUBERCULOUS PLEURISY
  2. ETHAMBUTOL [Concomitant]
     Indication: TUBERCULOUS PLEURISY
  3. RIFAMPICIN [Concomitant]
     Indication: TUBERCULOUS PLEURISY
  4. LACTULOSE [Concomitant]
     Route: 048
  5. DIURETICS [Concomitant]
     Indication: ASCITES
  6. DELORAZEPAM [Concomitant]
     Indication: PROPHYLAXIS AGAINST ALCOHOLIC WITHDRAWAL SYNDROME
     Dosage: 2 MG, TID
  7. DELORAZEPAM [Concomitant]
     Indication: AGITATION
     Dosage: 1 MG, TID
  8. DELORAZEPAM [Concomitant]
     Dosage: 5 MG, BID
  9. FOLINIC ACID [Concomitant]
     Indication: ALCOHOL ABUSE
  10. VITAMIN B12 [Concomitant]
     Indication: ALCOHOL ABUSE
  11. THIAMIN [Concomitant]
     Indication: ALCOHOL ABUSE
  12. GLUCOSE [Concomitant]
  13. AMINO ACIDS [Concomitant]
  14. HALOPERIDOL [Concomitant]
     Dosage: 5 MG, BID

REACTIONS (7)
  - Delirium [Recovered/Resolved]
  - Psychomotor hyperactivity [Recovered/Resolved]
  - Confusional state [Recovered/Resolved]
  - Disorientation [Recovered/Resolved]
  - Hallucination [Recovered/Resolved]
  - Altered state of consciousness [Recovered/Resolved]
  - Delusion [Recovered/Resolved]
